FAERS Safety Report 10587639 (Version 1)
Quarter: 2014Q4

REPORT INFORMATION
  Report Type: Spontaneous
  Country: IL (occurrence: IL)
  Receive Date: 20141117
  Receipt Date: 20141117
  Transmission Date: 20150529
  Serious: Yes (Other)
  Sender: FDA-Public Use
  Company Number: IL-BAYER-2014-165825

PATIENT
  Age: 33 Year
  Sex: Female

DRUGS (1)
  1. QLAIR [Suspect]
     Active Substance: DIENOGEST\ESTRADIOL VALERATE
     Indication: CONTRACEPTION
     Dosage: UNK
     Dates: start: 201407

REACTIONS (2)
  - Uterine injury [None]
  - Metrorrhagia [None]

NARRATIVE: CASE EVENT DATE: 201407
